FAERS Safety Report 23444222 (Version 1)
Quarter: 2024Q1

REPORT INFORMATION
  Report Type: Spontaneous
  Country: CN (occurrence: CN)
  Receive Date: 20240125
  Receipt Date: 20240125
  Transmission Date: 20240409
  Serious: Yes (Hospitalization, Other)
  Sender: FDA-Public Use
  Company Number: CN-PFIZER INC-202400020223

PATIENT
  Age: 59 Year
  Sex: Male

DRUGS (1)
  1. CIBINQO [Suspect]
     Active Substance: ABROCITINIB
     Indication: Dermatitis atopic
     Dosage: 1 DF, 1X/DAY
     Route: 048
     Dates: start: 2023, end: 20231031

REACTIONS (3)
  - Pulmonary mass [Unknown]
  - Pneumonia cryptococcal [Unknown]
  - Pneumonia [Unknown]

NARRATIVE: CASE EVENT DATE: 20231024
